FAERS Safety Report 19929486 (Version 1)
Quarter: 2021Q4

REPORT INFORMATION
  Report Type: Spontaneous
  Country: US (occurrence: US)
  Receive Date: 20211007
  Receipt Date: 20211007
  Transmission Date: 20220303
  Serious: No
  Sender: FDA-Public Use
  Company Number: US-PFIZER INC-202100934842

PATIENT
  Age: 40 Year
  Sex: Female
  Weight: 76.2 kg

DRUGS (4)
  1. CHANTIX [Suspect]
     Active Substance: VARENICLINE TARTRATE
     Indication: Smoking cessation therapy
     Dosage: 1 MG, TWICE DAILY (ONE IN THE MORNING AND ONE IN THE EVENING)
  2. DULOXETINE HYDROCHLORIDE [Concomitant]
     Active Substance: DULOXETINE HYDROCHLORIDE
     Indication: Fibromyalgia
     Dosage: 30 MG, 1X/DAY
     Route: 048
  3. ARMOUR THYROID [Concomitant]
     Active Substance: THYROID, PORCINE
     Indication: Autoimmune thyroiditis
     Dosage: 30 MG, 1X/DAY
     Route: 048
     Dates: start: 2013
  4. NORETHINDRONE [Concomitant]
     Active Substance: NORETHINDRONE
     Indication: Endometriosis
     Dosage: 0.35 MG, 1X/DAY
     Route: 048
     Dates: start: 2018

REACTIONS (4)
  - Abnormal behaviour [Recovered/Resolved]
  - Mood altered [Recovering/Resolving]
  - Depressed mood [Recovered/Resolved]
  - Crying [Recovered/Resolved]

NARRATIVE: CASE EVENT DATE: 20210101
